FAERS Safety Report 11890935 (Version 2)
Quarter: 2016Q1

REPORT INFORMATION
  Report Type: Spontaneous
  Country: BR (occurrence: BR)
  Receive Date: 20160106
  Receipt Date: 20160229
  Transmission Date: 20160526
  Serious: Yes (Other)
  Sender: FDA-Public Use
  Company Number: BR-PFIZER INC-2015475045

PATIENT
  Age: 83 Year
  Sex: Female
  Weight: 81 kg

DRUGS (8)
  1. XALATAN [Suspect]
     Active Substance: LATANOPROST
     Indication: GLAUCOMA
     Dosage: ONE DROP EACH EYE, 1X/DAY (AT NIGHT)
     Route: 047
     Dates: start: 2007, end: 2012
  2. XALATAN [Suspect]
     Active Substance: LATANOPROST
     Dosage: UNK
     Dates: start: 2012
  3. VITALUX [Concomitant]
     Active Substance: MINERALS\VITAMINS
     Indication: VITAL DYE STAINING CORNEA PRESENT
     Dosage: 1 DF, UNK
     Dates: start: 2014
  4. NOVOPRAZOL [Concomitant]
     Indication: ABDOMINAL DISCOMFORT
     Dosage: 1 DF, UNK
  5. APRAZ [Concomitant]
     Indication: SLEEP DISORDER
     Dosage: 1 DF, UNK
     Dates: start: 2014
  6. HYDROCHLOROTHIAZIDE. [Concomitant]
     Active Substance: HYDROCHLOROTHIAZIDE
     Indication: HYPERTENSION
     Dosage: 0.5 DF, UNK
     Dates: start: 2010
  7. SIMVASTATIN. [Concomitant]
     Active Substance: SIMVASTATIN
     Dosage: 1 DF, UNK
     Dates: start: 2014
  8. SINERGEN [Concomitant]
     Indication: HYPERTENSION
     Dosage: 1 DF, UNK
     Dates: start: 2014

REACTIONS (4)
  - Intraocular pressure increased [Unknown]
  - Cataract [Unknown]
  - Glaucoma [Recovered/Resolved]
  - Dizziness [Unknown]
